FAERS Safety Report 9143735 (Version 2)
Quarter: 2013Q2

REPORT INFORMATION
  Report Type: Spontaneous
  Country: FR (occurrence: FR)
  Receive Date: 20130306
  Receipt Date: 20130607
  Transmission Date: 20140414
  Serious: Yes (Death, Hospitalization)
  Sender: FDA-Public Use
  Company Number: FR-BRISTOL-MYERS SQUIBB COMPANY-17270075

PATIENT
  Age: 90 Year
  Sex: Female
  Weight: 55.2 kg

DRUGS (16)
  1. COUMADINE [Suspect]
     Dosage: 4MG:10DEC12-13DEC12?5MG:13DEC-16DEC12?RESUMED-21DEC12-03JAN13
     Route: 048
     Dates: start: 20121210
  2. CALCIPARINE [Suspect]
     Dosage: INTERR:13DEC12?RESTART:3JAN13 UNTIL13JAN13
     Route: 058
     Dates: start: 20121205
  3. LOVENOX [Concomitant]
     Indication: ATRIAL FIBRILLATION
     Dosage: 1DF=4000
     Dates: start: 20121122, end: 20121127
  4. INNOHEP [Concomitant]
     Indication: ATRIAL FIBRILLATION
     Route: 058
     Dates: start: 20121128, end: 20121204
  5. DEPAMIDE [Concomitant]
  6. LEVOTHYROX [Concomitant]
  7. CALCIDOSE [Concomitant]
  8. MOVICOL [Concomitant]
  9. DIFFU-K [Concomitant]
  10. VENLAFAXINE HCL [Concomitant]
  11. DAFALGAN [Concomitant]
  12. IMOVANE [Concomitant]
  13. RIVOTRIL [Concomitant]
  14. LEVETIRACETAM [Concomitant]
  15. LASILIX [Concomitant]
  16. BISOPROLOL [Concomitant]

REACTIONS (2)
  - Death [Fatal]
  - Rectal haemorrhage [Recovered/Resolved]
